FAERS Safety Report 8375238-1 (Version None)
Quarter: 2012Q2

REPORT INFORMATION
  Report Type: 
  Country: None (occurrence: None)
  Receive Date: 20120522
  Receipt Date: 20120508
  Transmission Date: 20120825
  Serious: Yes (Death, Other)
  Sender: FDA-Public Use
  Company Number: GB-RANBAXY-2012R1-56330

PATIENT
  Age: 33 Year
  Sex: Male

DRUGS (12)
  1. CALCICHEW D3 [Concomitant]
     Indication: HEPATITIS C
     Dosage: UNK
     Route: 048
     Dates: start: 20110503
  2. OMEPRAZOLE [Concomitant]
     Indication: DYSPEPSIA
     Dosage: 200 MG 1 DAYS
     Route: 048
     Dates: start: 20101210
  3. RAMIPRIL [Interacting]
     Dosage: 10 MG, 1DAYS
     Route: 065
     Dates: start: 20120306, end: 20120309
  4. CLOZAPINE [Interacting]
     Indication: PRODUCT USED FOR UNKNOWN INDICATION
     Dosage: UNK
     Route: 048
     Dates: start: 20111025, end: 20120307
  5. CLOZAPINE [Interacting]
     Dosage: 100 MG, BID
     Route: 048
     Dates: start: 20120319, end: 20120401
  6. MOVIPREP [Concomitant]
     Indication: CONSTIPATION
     Dosage: 3 DF 1 DAYS
     Route: 048
     Dates: start: 20110427
  7. RAMIPRIL [Suspect]
     Indication: HYPERTENSION
     Dosage: 5 MG, 1DAYS
     Route: 065
     Dates: start: 20120302
  8. RAMIPRIL [Interacting]
     Dosage: 2.5 MG, 1DAYS
     Route: 065
     Dates: start: 20110822
  9. RIBAVIRIN [Interacting]
     Indication: HEPATITIS C
     Dosage: UNK
     Route: 048
     Dates: start: 20110516
  10. BECLOMETHASONE DIPROPIONATE [Concomitant]
     Indication: ASTHMA
     Dosage: 200 UG, BID
     Route: 065
     Dates: start: 20110525
  11. PEGINTERFERON ALFA-2A [Concomitant]
     Indication: HEPATITIS C
     Dosage: 180 UG, 1WEEKS
     Route: 058
     Dates: start: 20110516
  12. VENLAFAXINE [Concomitant]
     Indication: DEPRESSION
     Dosage: UNK
     Route: 048
     Dates: start: 20101217

REACTIONS (4)
  - WHITE BLOOD CELL COUNT DECREASED [None]
  - NEUTROPENIA [None]
  - DRUG INTERACTION [None]
  - NEUTROPHIL COUNT DECREASED [None]
